FAERS Safety Report 8010833-0 (Version None)
Quarter: 2011Q4

REPORT INFORMATION
  Report Type: 
  Country: None (occurrence: None)
  Receive Date: 20111222
  Receipt Date: 20111212
  Transmission Date: 20120403
  Serious: Yes (Death, Hospitalization)
  Sender: FDA-Public Use
  Company Number: DKLU1058591

PATIENT
  Age: 20 Year
  Sex: Female

DRUGS (5)
  1. ACETAMINOPHEN [Concomitant]
  2. ONFI [Suspect]
     Indication: MYOCLONIC EPILEPSY
     Dosage: 1 IN 1 D, ORAL
     Route: 048
     Dates: start: 20041030, end: 20050204
  3. VALPROIC ACID [Suspect]
     Indication: MYOCLONIC EPILEPSY
     Dosage: 500 MG MILLIGRAM(S), 2 IN 1 D, ORAL
     Route: 048
     Dates: start: 20041030, end: 20050204
  4. CEFPODOXIME PROXETIL [Concomitant]
  5. MELIANE (FEMODENE) (TABLET) [Suspect]
     Indication: CONTRACEPTION
     Dosage: 1 IN 1 D, ORAL
     Route: 048
     Dates: start: 20040101

REACTIONS (6)
  - HEPATITIS TOXIC [None]
  - NAUSEA [None]
  - INFLUENZA LIKE ILLNESS [None]
  - DIARRHOEA [None]
  - HEPATIC FAILURE [None]
  - HEPATIC STEATOSIS [None]
